FAERS Safety Report 7963033-4 (Version None)
Quarter: 2011Q4

REPORT INFORMATION
  Report Type: 
  Country: None (occurrence: None)
  Receive Date: 20111207
  Receipt Date: 20111202
  Transmission Date: 20120403
  Serious: Yes (Life-Threatening, Other)
  Sender: FDA-Public Use
  Company Number: US-GILEAD-2011-0046655

PATIENT
  Age: 34 Year
  Sex: Female

DRUGS (4)
  1. ALBENDAZOLE [Concomitant]
     Dosage: UNK
     Dates: start: 20110505
  2. ACETAMINOPHEN [Concomitant]
     Dosage: UNK
     Dates: start: 20110505, end: 20110509
  3. TENOFOVIR DISOPROXIL FUMARATE [Suspect]
     Indication: PROPHYLAXIS AGAINST HIV INFECTION
     Dosage: UNK
     Dates: start: 20091217, end: 20110531
  4. CLOTRIMAZOLE [Concomitant]
     Dosage: 1 %, UNK
     Dates: start: 20110407, end: 20110414

REACTIONS (1)
  - ABORTION SPONTANEOUS COMPLETE [None]
